FAERS Safety Report 4815882-9 (Version None)
Quarter: 2005Q4

REPORT INFORMATION
  Report Type: 
  Country: None (occurrence: None)
  Receive Date: 20051031
  Receipt Date: 20051020
  Transmission Date: 20060501
  Serious: Yes (Other)
  Sender: FDA-Public Use
  Company Number: IE-JNJFOC-20051004357

PATIENT
  Age: 9 Year
  Sex: Female

DRUGS (2)
  1. CONCERTA [Suspect]
     Indication: DRUG USE FOR UNKNOWN INDICATION
     Route: 048
  2. RITALIN [Concomitant]
     Dosage: COMBINED THERAPY WITH CONCERTA, TAKEN IN THE EVENING
     Route: 065

REACTIONS (2)
  - IRRITABILITY [None]
  - MORBID THOUGHTS [None]
